APPROVED DRUG PRODUCT: METFORMIN HYDROCHLORIDE
Active Ingredient: METFORMIN HYDROCHLORIDE
Strength: 500MG
Dosage Form/Route: TABLET, EXTENDED RELEASE;ORAL
Application: A201991 | Product #001 | TE Code: AB1
Applicant: INVENTIA HEALTHCARE LTD
Approved: Jan 18, 2012 | RLD: No | RS: No | Type: RX